FAERS Safety Report 15917769 (Version 2)
Quarter: 2019Q1

REPORT INFORMATION
  Report Type: Spontaneous
  Country: US (occurrence: US)
  Receive Date: 20190205
  Receipt Date: 20190325
  Transmission Date: 20190417
  Serious: No
  Sender: FDA-Public Use
  Company Number: US-PFIZER INC-2019041156

PATIENT
  Age: 64 Year
  Sex: Female
  Weight: 159 kg

DRUGS (3)
  1. ADVIL LIQUI-GELS [Suspect]
     Active Substance: IBUPROFEN
     Indication: BACK PAIN
     Dosage: UNK
  2. ADVIL LIQUI-GELS [Suspect]
     Active Substance: IBUPROFEN
     Indication: PAIN IN EXTREMITY
     Dosage: 400 MG, EACH TIME EVERY 4-6 HOURS FOR 2 DOSES
     Route: 048
     Dates: start: 201901, end: 201901
  3. ADVIL LIQUI-GELS [Suspect]
     Active Substance: IBUPROFEN
     Dosage: 2 - 200 MG CAPLETS EVERY 4 HOURS
     Route: 048
     Dates: start: 20190204, end: 20190205

REACTIONS (1)
  - Drug effect incomplete [Unknown]
